FAERS Safety Report 10096716 (Version 2)
Quarter: 2015Q1

REPORT INFORMATION
  Report Type: Spontaneous
  Country: DE (occurrence: SE)
  Receive Date: 20140422
  Receipt Date: 20150109
  Transmission Date: 20150720
  Serious: Yes (Hospitalization)
  Sender: FDA-Public Use
  Company Number: SE-FRI-1000066752

PATIENT
  Age: 81 Year
  Sex: Female

DRUGS (4)
  1. RIVASTIGMINE [Suspect]
     Active Substance: RIVASTIGMINE
     Indication: DEMENTIA ALZHEIMER^S TYPE
     Dosage: 9 MG
     Route: 048
     Dates: start: 20081010
  2. MEMANTINE [Suspect]
     Active Substance: MEMANTINE
     Indication: DEMENTIA ALZHEIMER^S TYPE
     Dosage: 20 MG
     Route: 048
     Dates: start: 20140211
  3. ENALAPRIL [Concomitant]
     Active Substance: ENALAPRIL
  4. LYRICA [Concomitant]
     Active Substance: PREGABALIN

REACTIONS (1)
  - Hyponatraemia [Recovered/Resolved]

NARRATIVE: CASE EVENT DATE: 20140324
